FAERS Safety Report 14929926 (Version 3)
Quarter: 2019Q1

REPORT INFORMATION
  Report Type: Report from Study
  Country: DE (occurrence: DE)
  Receive Date: 20180523
  Receipt Date: 20190130
  Transmission Date: 20190417
  Serious: Yes (Hospitalization, Disabling, Other)
  Sender: FDA-Public Use
  Company Number: DE-MYLANLABS-2018M1033250

PATIENT
  Age: 76 Year
  Sex: Female

DRUGS (3)
  1. METHOTREXATE. [Suspect]
     Active Substance: METHOTREXATE
     Indication: RHEUMATOID ARTHRITIS
     Dosage: 10 MG, QW
     Route: 065
  2. MABTHERA [Suspect]
     Active Substance: RITUXIMAB
     Dosage: UNK MG, UNK
     Route: 042
  3. MABTHERA [Suspect]
     Active Substance: RITUXIMAB
     Indication: RHEUMATOID ARTHRITIS
     Dosage: 1000 MG, UNK
     Route: 042
     Dates: end: 20160830

REACTIONS (9)
  - Pulmonary fibrosis [Not Recovered/Not Resolved]
  - Pulmonary embolism [Unknown]
  - Episcleritis [Unknown]
  - Gastroenteritis clostridial [Recovered/Resolved]
  - Keratitis [Recovered/Resolved]
  - Nasopharyngitis [Unknown]
  - Respiratory failure [Unknown]
  - Pulmonary arterial hypertension [Unknown]
  - Osteoporosis [Unknown]

NARRATIVE: CASE EVENT DATE: 20161130
